FAERS Safety Report 9677252 (Version 2)
Quarter: 2013Q4

REPORT INFORMATION
  Report Type: Spontaneous
  Country: IT (occurrence: IT)
  Receive Date: 20131108
  Receipt Date: 20131112
  Transmission Date: 20140711
  Serious: Yes (Life-Threatening)
  Sender: FDA-Public Use
  Company Number: IT-ACCORD-020183

PATIENT
  Age: 52 Year
  Sex: Female
  Weight: 73 kg

DRUGS (5)
  1. PACLITAXEL [Suspect]
     Indication: BREAST CANCER
     Route: 042
     Dates: start: 20130925, end: 20130925
  2. KYTRIL [Concomitant]
     Dates: start: 20130925, end: 20130925
  3. TRIMETON [Concomitant]
     Dates: start: 20130925, end: 20130925
  4. DEXAMETHASONE [Concomitant]
     Dates: start: 20130925, end: 20130925
  5. RANITIDINE [Concomitant]
     Dates: start: 20130925, end: 20130925

REACTIONS (1)
  - Anaphylactic shock [Recovered/Resolved]
